FAERS Safety Report 8859243 (Version 2)
Quarter: 2012Q4

REPORT INFORMATION
  Report Type: Spontaneous
  Country: GB (occurrence: None)
  Receive Date: 20121023
  Receipt Date: 20121108
  Transmission Date: 20130627
  Serious: Yes (Hospitalization, Other)
  Sender: FDA-Public Use
  Company Number: GER/UKI/12/0026279

PATIENT
  Age: 89 Year
  Sex: Female

DRUGS (5)
  1. DONEPEZIL (DONEPEZIL) [Suspect]
     Indication: DEMENTIA
     Dosage: 10 mg, 1 in 1D, Oral
     Dates: start: 201201, end: 20120820
  2. ASPIRIN [Concomitant]
  3. ATENOLOL (ATENOLOL) [Concomitant]
  4. FUROSEMIDE (FUROSEMIDE) [Concomitant]
  5. SIMVASTATIN (SIMVASTATIN) [Concomitant]

REACTIONS (3)
  - Sinus bradycardia [None]
  - Circulatory collapse [None]
  - Atrioventricular block first degree [None]
